FAERS Safety Report 25023740 (Version 1)
Quarter: 2025Q1

REPORT INFORMATION
  Report Type: Spontaneous
  Country: US (occurrence: US)
  Receive Date: 20250228
  Receipt Date: 20250228
  Transmission Date: 20250409
  Serious: No
  Sender: BRISTOL-MYERS SQUIBB COMPANY
  Company Number: US-BRISTOL-MYERS SQUIBB COMPANY-2025-030804

PATIENT
  Age: 64 Year
  Sex: Female

DRUGS (1)
  1. INREBIC [Suspect]
     Active Substance: FEDRATINIB HYDROCHLORIDE
     Indication: Product used for unknown indication
     Dosage: 100 MG 4 CAPSULES; TAKE 4 CAPSULES BY MOUTH DAILY WITH HIGH FAT MEAL TO REDUCE NAUSEA AND VOMITING
     Route: 048

REACTIONS (1)
  - Hepatic steatosis [Unknown]

NARRATIVE: CASE EVENT DATE: 20241201
